FAERS Safety Report 4849505-X (Version None)
Quarter: 2005Q4

REPORT INFORMATION
  Report Type: 
  Country: None (occurrence: None)
  Receive Date: 20051207
  Receipt Date: 20051125
  Transmission Date: 20060501
  Serious: Yes (Death, Hospitalization)
  Sender: FDA-Public Use
  Company Number: 9946831

PATIENT
  Sex: Female

DRUGS (1)
  1. AMLODIPINE [Suspect]
     Indication: HYPERTENSION
     Dosage: 5 MG (5 MG, 1 IN 1 D), ORAL
     Route: 048
     Dates: start: 19950101, end: 19991101

REACTIONS (4)
  - DYSPNOEA [None]
  - LUNG NEOPLASM [None]
  - OVARIAN NEOPLASM [None]
  - SMALL INTESTINE CARCINOMA [None]
